FAERS Safety Report 6566520-9 (Version None)
Quarter: 2010Q1

REPORT INFORMATION
  Report Type: 
  Country: None (occurrence: None)
  Receive Date: 20100202
  Receipt Date: 20100115
  Transmission Date: 20100710
  Serious: Yes (Hospitalization)
  Sender: FDA-Public Use
  Company Number: US-SANOFI-AVENTIS-2010SA004850

PATIENT
  Age: 70 Year
  Sex: Male
  Weight: 100 kg

DRUGS (20)
  1. CLOPIDOGREL BISULFATE [Suspect]
     Indication: PERCUTANEOUS CORONARY INTERVENTION
     Dosage: DOSE:4 UNIT(S)
     Route: 048
     Dates: start: 20081230, end: 20081230
  2. INVESTIGATIONAL DRUG [Suspect]
     Indication: PERCUTANEOUS CORONARY INTERVENTION
     Route: 040
     Dates: start: 20081230, end: 20081230
  3. INVESTIGATIONAL DRUG [Suspect]
     Route: 041
     Dates: start: 20081230, end: 20081230
  4. PLACEBO [Suspect]
     Indication: PERCUTANEOUS CORONARY INTERVENTION
     Dosage: DOSE:4 UNIT(S)
     Route: 048
     Dates: start: 20081230, end: 20081230
  5. ASPIRIN [Concomitant]
  6. HEPARIN [Concomitant]
     Dates: start: 20081231, end: 20081231
  7. TIROFIBAN [Concomitant]
     Dates: start: 20081230, end: 20081230
  8. ALBUTEROL [Concomitant]
     Dates: start: 20081231
  9. CEFTRIAXONE [Concomitant]
     Dates: start: 20081231, end: 20081231
  10. BISOPROLOL [Concomitant]
     Dates: start: 20081231
  11. RAMIPRIL [Concomitant]
     Dates: start: 20081231
  12. PREDNISOLON [Concomitant]
     Dates: start: 20081231
  13. TORSEMIDE [Concomitant]
     Dates: start: 20081231
  14. LACTULOSE [Concomitant]
     Dates: start: 20081231, end: 20081231
  15. IPRATROPIUM BROMIDE [Concomitant]
     Dates: start: 20081231
  16. KALIUM [Concomitant]
     Dates: start: 20081231, end: 20081231
  17. CLOPIDOGREL [Concomitant]
     Dates: start: 20081231
  18. ACETYLSALICYLSAEURE [Concomitant]
     Dates: start: 20081231
  19. FLUTICASONE W/SALMETEROL [Concomitant]
     Dates: start: 20081231
  20. ACETYLCYSTEINE [Concomitant]
     Dates: start: 20081231, end: 20081231

REACTIONS (1)
  - EMBOLISM [None]
